FAERS Safety Report 13520557 (Version 4)
Quarter: 2020Q2

REPORT INFORMATION
  Report Type: Report from Study
  Country: EG (occurrence: EG)
  Receive Date: 20170508
  Receipt Date: 20200605
  Transmission Date: 20200713
  Serious: Yes (Death)
  Sender: FDA-Public Use
  Company Number: EG-ROCHE-1931881

PATIENT
  Age: 2 Month
  Sex: Male

DRUGS (2)
  1. CICLOPLEJICO [Concomitant]
     Active Substance: CYCLOPENTOLATE HYDROCHLORIDE
     Indication: PUPIL DILATION PROCEDURE
     Dosage: EYE DROP
     Route: 047
     Dates: start: 20170502, end: 20170502
  2. RANIBIZUMAB. [Suspect]
     Active Substance: RANIBIZUMAB
     Indication: RETINOPATHY OF PREMATURITY
     Dosage: 0.1 MG/EYE IN BOTH EYES
     Route: 031
     Dates: start: 20170502, end: 20170502

REACTIONS (1)
  - Respiratory failure [Fatal]

NARRATIVE: CASE EVENT DATE: 20170503
